FAERS Safety Report 6388949-4 (Version None)
Quarter: 2009Q4

REPORT INFORMATION
  Report Type: 
  Country: None (occurrence: None)
  Receive Date: 20091001
  Receipt Date: 20090922
  Transmission Date: 20100525
  Serious: Yes (Hospitalization)
  Sender: FDA-Public Use
  Company Number: ADR29162009

PATIENT
  Age: 82 Year
  Sex: Female

DRUGS (8)
  1. RAMIPRIL [Suspect]
     Dosage: 5 MG, 1/1 DAY, ORAL
     Route: 048
  2. ASPIRIN [Concomitant]
  3. BISOPROLOL [Concomitant]
  4. FUROSEMIDE [Concomitant]
  5. HYDROXYCARBAMIDE [Concomitant]
  6. ISOSORBIDE MONONITRATE [Concomitant]
  7. LEVOTHYVOXINE [Concomitant]
  8. RANITIDINE [Concomitant]

REACTIONS (1)
  - HYPERHIDROSIS [None]
